FAERS Safety Report 21902099 (Version 4)
Quarter: 2023Q2

REPORT INFORMATION
  Report Type: Report from Study
  Country: PT (occurrence: PT)
  Receive Date: 20230124
  Receipt Date: 20230609
  Transmission Date: 20230721
  Serious: Yes (Hospitalization, Disabling, Other)
  Sender: FDA-Public Use
  Company Number: PT-ABBVIE-4278620

PATIENT
  Age: 68 Year
  Sex: Male

DRUGS (4)
  1. SKYRIZI [Suspect]
     Active Substance: RISANKIZUMAB-RZAA
     Indication: Psoriasis
     Dosage: STRENGTH: 150 MG
     Route: 058
  2. SKYRIZI [Suspect]
     Active Substance: RISANKIZUMAB-RZAA
     Indication: Psoriasis
     Dosage: STRENGTH: 75 MG
     Route: 058
     Dates: start: 20200827
  3. SKYRIZI [Suspect]
     Active Substance: RISANKIZUMAB-RZAA
     Dosage: STRENGTH: 75 MG?LOADING DOSE 2
     Route: 058
     Dates: start: 20200604, end: 20200604
  4. SKYRIZI [Suspect]
     Active Substance: RISANKIZUMAB-RZAA
     Dosage: STRENGTH: 75 MG?LOADING DOSE 1
     Route: 058
     Dates: start: 20200507, end: 20200507

REACTIONS (3)
  - Cerebrovascular accident [Recovered/Resolved with Sequelae]
  - Oral disorder [Recovered/Resolved]
  - Unevaluable event [Recovering/Resolving]

NARRATIVE: CASE EVENT DATE: 20221101
